FAERS Safety Report 25768208 (Version 1)
Quarter: 2025Q3

REPORT INFORMATION
  Report Type: Spontaneous
  Country: US (occurrence: US)
  Receive Date: 20250905
  Receipt Date: 20250905
  Transmission Date: 20251020
  Serious: No
  Sender: DOMPE FARMACEUTICI
  Company Number: US-FARMAPROD-202506-1890

PATIENT
  Sex: Male

DRUGS (5)
  1. OXERVATE [Suspect]
     Active Substance: CENEGERMIN-BKBJ
     Indication: Neurotrophic keratopathy
     Route: 047
     Dates: start: 20250527
  2. OXERVATE [Suspect]
     Active Substance: CENEGERMIN-BKBJ
  3. LAMOTRIGINE [Concomitant]
     Active Substance: LAMOTRIGINE
  4. ROSUVASTATIN CALCIUM [Concomitant]
     Active Substance: ROSUVASTATIN CALCIUM
  5. BLOOD SERUM [Concomitant]

REACTIONS (3)
  - Therapy partial responder [Not Recovered/Not Resolved]
  - Photophobia [Unknown]
  - Lacrimation increased [Unknown]
